FAERS Safety Report 4778738-6 (Version None)
Quarter: 2005Q3

REPORT INFORMATION
  Report Type: 
  Country: None (occurrence: None)
  Receive Date: 20050926
  Receipt Date: 20050914
  Transmission Date: 20060218
  Serious: Yes (Hospitalization)
  Sender: FDA-Public Use
  Company Number: FR-BRISTOL-MYERS SQUIBB COMPANY-13111620

PATIENT
  Age: 69 Year
  Sex: Male

DRUGS (4)
  1. DAFALGAN CAPS 500 MG [Suspect]
     Indication: HEADACHE
     Route: 048
     Dates: start: 20041220, end: 20041221
  2. FOZIRETIC [Suspect]
     Indication: ESSENTIAL HYPERTENSION
     Route: 048
     Dates: end: 20041221
  3. PROFENID [Suspect]
     Indication: NECK PAIN
     Route: 048
     Dates: start: 20041220, end: 20041220
  4. CRESTOR [Suspect]
     Indication: HYPERCHOLESTEROLAEMIA
     Route: 048
     Dates: end: 20041221

REACTIONS (3)
  - MENINGITIS STREPTOCOCCAL [None]
  - SELF-MEDICATION [None]
  - SEPSIS [None]
